FAERS Safety Report 5484783-8 (Version None)
Quarter: 2007Q4

REPORT INFORMATION
  Report Type: 
  Country: None (occurrence: None)
  Receive Date: 20071012
  Receipt Date: 20071004
  Transmission Date: 20080405
  Serious: Yes (Other)
  Sender: FDA-Public Use
  Company Number: ES-PFIZER INC-2007083775

PATIENT
  Age: 63 Year
  Sex: Male

DRUGS (1)
  1. PREVENCOR [Suspect]
     Indication: HYPERLIPIDAEMIA
     Route: 048
     Dates: start: 20070730, end: 20070801

REACTIONS (2)
  - PRURITUS [None]
  - RASH VESICULAR [None]
